FAERS Safety Report 13865992 (Version 1)
Quarter: 2017Q3

REPORT INFORMATION
  Report Type: Spontaneous
  Country: PT (occurrence: PT)
  Receive Date: 20170814
  Receipt Date: 20170814
  Transmission Date: 20171127
  Serious: Yes (Other)
  Sender: FDA-Public Use
  Company Number: PT-MYLANLABS-2017M1048497

PATIENT

DRUGS (7)
  1. ATORVASTATIN [Suspect]
     Active Substance: ATORVASTATIN
     Indication: DYSLIPIDAEMIA
     Dosage: 10 MG, UNK
  2. LISINOPRIL. [Suspect]
     Active Substance: LISINOPRIL
     Indication: HYPERTENSIVE CARDIOMYOPATHY
  3. LISINOPRIL. [Suspect]
     Active Substance: LISINOPRIL
     Indication: ISCHAEMIC CARDIOMYOPATHY
     Dosage: 5 MG, UNK
  4. BISOPROLOL [Suspect]
     Active Substance: BISOPROLOL
     Indication: ISCHAEMIC CARDIOMYOPATHY
     Dosage: 2.5 MG, UNK
  5. BISOPROLOL [Suspect]
     Active Substance: BISOPROLOL
     Indication: HYPERTENSIVE CARDIOMYOPATHY
  6. QUETIAPINE. [Suspect]
     Active Substance: QUETIAPINE
     Indication: VASCULAR DEMENTIA
     Dosage: 25 MG, UNK
  7. METFORMIN [Suspect]
     Active Substance: METFORMIN HYDROCHLORIDE
     Indication: TYPE 2 DIABETES MELLITUS
     Dosage: 1000 MG, UNK

REACTIONS (1)
  - Inappropriate antidiuretic hormone secretion [Unknown]
